FAERS Safety Report 9484100 (Version 2)
Quarter: 2013Q3

REPORT INFORMATION
  Report Type: Spontaneous
  Country: CA (occurrence: CA)
  Receive Date: 20130828
  Receipt Date: 20130828
  Transmission Date: 20140515
  Serious: Yes (Hospitalization)
  Sender: FDA-Public Use
  Company Number: CA-AMGEN-KDL282744

PATIENT
  Age: 57 Year
  Sex: Female
  Weight: 90.8 kg

DRUGS (6)
  1. ENBREL [Suspect]
     Indication: RHEUMATOID ARTHRITIS
     Dosage: UNK UNK, QWK
     Route: 058
     Dates: start: 20071026
  2. METHOTREXATE [Concomitant]
     Dosage: UNK UNK, UNK
     Route: 048
  3. DICLOFENAC SODIUM [Concomitant]
  4. OMEPRAZOLE [Concomitant]
  5. AMLODIPINE [Concomitant]
  6. ROSUVASTATIN CALCIUM [Concomitant]

REACTIONS (8)
  - Intestinal obstruction [Recovering/Resolving]
  - Enteritis [Recovering/Resolving]
  - Kidney infection [Recovering/Resolving]
  - Hyperkeratosis [Unknown]
  - Localised infection [Recovering/Resolving]
  - Incision site infection [Recovering/Resolving]
  - Diarrhoea [Recovering/Resolving]
  - Psoriasis [Not Recovered/Not Resolved]
